FAERS Safety Report 8858084 (Version 1)
Quarter: 2012Q4

REPORT INFORMATION
  Report Type: 
  Country: US (occurrence: US)
  Receive Date: 20121024
  Receipt Date: 20121024
  Transmission Date: 20130627
  Serious: No
  Sender: FDA-Public Use
  Company Number: US-AMGEN-USASP2011063815

PATIENT
  Age: 62 Year
  Weight: 77.1 kg

DRUGS (6)
  1. ENBREL [Suspect]
     Indication: PRODUCT USED FOR UNKNOWN INDICATION
     Dosage: 50 mg, qwk
     Route: 058
  2. ARAVA [Concomitant]
     Dosage: 10 mg, UNK
     Route: 048
  3. VASOTEC                            /00574902/ [Concomitant]
     Dosage: 10 mg, UNK
     Route: 048
  4. BENICAR [Concomitant]
     Dosage: 20 mg, UNK
     Route: 048
  5. OMEGA 3                            /01334101/ [Concomitant]
     Dosage: 340 mg, UNK
     Route: 048
  6. HYDROCHLOROTH [Concomitant]
     Dosage: 12.5 mg, UNK
     Route: 048

REACTIONS (5)
  - Nephrolithiasis [Unknown]
  - Cough [Unknown]
  - Injection site erythema [Unknown]
  - Injection site pain [Unknown]
  - Injection site swelling [Unknown]
